FAERS Safety Report 4637339-0 (Version None)
Quarter: 2005Q2

REPORT INFORMATION
  Report Type: 
  Country: None (occurrence: None)
  Receive Date: 20050328
  Receipt Date: 20041206
  Transmission Date: 20051028
  Serious: No
  Sender: FDA-Public Use
  Company Number: USA041285368

PATIENT
  Age: 60 Year
  Sex: Female
  Weight: 50 kg

DRUGS (4)
  1. STRATTERA [Suspect]
     Indication: ATTENTION DEFICIT/HYPERACTIVITY DISORDER
     Dosage: 10 MG/1 DAY
     Dates: end: 20041101
  2. DEXEDRINE [Concomitant]
  3. FOSAMAX [Concomitant]
  4. AMBIEN [Concomitant]

REACTIONS (2)
  - APATHY [None]
  - SOMNOLENCE [None]
